FAERS Safety Report 11183182 (Version 1)
Quarter: 2015Q2

REPORT INFORMATION
  Report Type: Report from Study
  Country: JP (occurrence: JP)
  Receive Date: 20150611
  Receipt Date: 20150611
  Transmission Date: 20150821
  Serious: Yes (Hospitalization)
  Sender: FDA-Public Use
  Company Number: PHHO2013JP001257

PATIENT
  Age: 81 Year
  Sex: Female
  Weight: 47 kg

DRUGS (12)
  1. MINZAIN [Concomitant]
     Active Substance: TRIAZOLAM
     Dosage: 0.25 MG, UNK
     Route: 048
  2. SENIRAN [Concomitant]
     Active Substance: BROMAZEPAM
     Dosage: 2 MG, UNK
     Route: 048
  3. LOXONIN [Concomitant]
     Active Substance: LOXOPROFEN SODIUM
     Route: 062
  4. COROHERSER R [Concomitant]
     Dosage: 100 MG, UNK
     Route: 048
     Dates: start: 20120523
  5. BROTIZOLAM [Concomitant]
     Active Substance: BROTIZOLAM
     Dosage: 0.25 MG, UNK
     Route: 048
  6. WADACALCIUM [Concomitant]
     Active Substance: CALCIUM CITRATE\CALCIUM LACTATE\CALCIUM PHOSPHATE
     Dosage: 4 DF, UNK
     Route: 048
     Dates: start: 20120314
  7. ANAFRANIL [Concomitant]
     Active Substance: CLOMIPRAMINE HYDROCHLORIDE
     Dosage: 10 MG, UNK
     Route: 048
  8. URSO [Concomitant]
     Active Substance: URSODIOL
     Dosage: 300 MG, UNK
     Route: 048
  9. BRUFEN ^ABBOTT^ [Concomitant]
     Active Substance: IBUPROFEN
     Dosage: 200 MG, UNK
     Route: 048
     Dates: start: 20120526, end: 20120526
  10. NICHIMALON [Concomitant]
     Dosage: 200 MG, UNK
     Route: 048
     Dates: start: 20120919
  11. ACLASTA [Suspect]
     Active Substance: ZOLEDRONIC ACID
     Indication: OSTEOPOROSIS
     Dosage: 5.33 MG (ONCE A YEAR)
     Route: 042
     Dates: start: 20120525
  12. TAKEPRON [Concomitant]
     Active Substance: LANSOPRAZOLE
     Dosage: 15 MG, UNK
     Route: 048

REACTIONS (1)
  - Pneumonia [Recovered/Resolved]

NARRATIVE: CASE EVENT DATE: 20130110
